FAERS Safety Report 12754221 (Version 1)
Quarter: 2016Q3

REPORT INFORMATION
  Report Type: Report from Study
  Country: US (occurrence: US)
  Receive Date: 20160915
  Receipt Date: 20160915
  Transmission Date: 20161109
  Serious: Yes (Hospitalization, Other)
  Sender: FDA-Public Use
  Company Number: US-ASTRAZENECA-2016SE60786

PATIENT
  Sex: Female
  Weight: 57.6 kg

DRUGS (18)
  1. SEROQUEL XR [Suspect]
     Active Substance: QUETIAPINE FUMARATE
     Indication: BIPOLAR DISORDER
     Dosage: 200.0MG UNKNOWN
     Route: 048
  2. PROGESTERONE. [Concomitant]
     Active Substance: PROGESTERONE
  3. SEROQUEL XR [Suspect]
     Active Substance: QUETIAPINE FUMARATE
     Indication: ANXIETY
     Dosage: 200.0MG UNKNOWN
     Route: 048
  4. VISTRAL [Concomitant]
  5. SEROQUEL XR [Suspect]
     Active Substance: QUETIAPINE FUMARATE
     Indication: INSOMNIA
     Dosage: 200.0MG UNKNOWN
     Route: 048
  6. SEROQUEL XR [Suspect]
     Active Substance: QUETIAPINE FUMARATE
     Indication: BIPOLAR DISORDER
     Dosage: GENERIC QUETIAPINE FUMARATE; 150MG TWICE DAILY.  UNKNOWN
     Route: 065
     Dates: start: 1984
  7. SEROQUEL XR [Suspect]
     Active Substance: QUETIAPINE FUMARATE
     Indication: INSOMNIA
     Dosage: GENERIC QUETIAPINE FUMARATE; 150MG TWICE DAILY.  UNKNOWN
     Route: 065
     Dates: start: 1984
  8. TESTOSTERONE. [Concomitant]
     Active Substance: TESTOSTERONE
  9. ATIVAN [Concomitant]
     Active Substance: LORAZEPAM
  10. SEROQUEL XR [Suspect]
     Active Substance: QUETIAPINE FUMARATE
     Indication: ANXIETY
     Dosage: GENERIC QUETIAPINE FUMARATE; 150MG TWICE DAILY.  UNKNOWN
     Route: 065
     Dates: start: 1984
  11. SEROQUEL XR [Suspect]
     Active Substance: QUETIAPINE FUMARATE
     Indication: INSOMNIA
     Dosage: 50.0MG UNKNOWN
     Route: 048
  12. SEROQUEL XR [Suspect]
     Active Substance: QUETIAPINE FUMARATE
     Indication: BIPOLAR DISORDER
     Dosage: 100.0MG UNKNOWN
     Route: 048
  13. SEROQUEL XR [Suspect]
     Active Substance: QUETIAPINE FUMARATE
     Indication: ANXIETY
     Dosage: 100.0MG UNKNOWN
     Route: 048
  14. SEROQUEL XR [Suspect]
     Active Substance: QUETIAPINE FUMARATE
     Indication: INSOMNIA
     Dosage: 100.0MG UNKNOWN
     Route: 048
  15. SEROQUEL XR [Suspect]
     Active Substance: QUETIAPINE FUMARATE
     Indication: BIPOLAR DISORDER
     Dosage: 50.0MG UNKNOWN
     Route: 048
  16. SEROQUEL XR [Suspect]
     Active Substance: QUETIAPINE FUMARATE
     Indication: ANXIETY
     Dosage: 50.0MG UNKNOWN
     Route: 048
  17. SYNTHROID [Concomitant]
     Active Substance: LEVOTHYROXINE SODIUM
     Indication: HORMONE REPLACEMENT THERAPY
  18. ESTROGEN [Concomitant]
     Active Substance: ESTRONE\SUS SCROFA OVARY

REACTIONS (8)
  - Therapeutic response changed [Unknown]
  - Product use issue [Unknown]
  - Anxiety [Unknown]
  - Dehydration [Unknown]
  - Crying [Unknown]
  - Off label use [Unknown]
  - Condition aggravated [Unknown]
  - Concussion [Unknown]
